FAERS Safety Report 20354036 (Version 1)
Quarter: 2022Q1

REPORT INFORMATION
  Report Type: Spontaneous
  Country: IT (occurrence: IT)
  Receive Date: 20220120
  Receipt Date: 20220120
  Transmission Date: 20220423
  Serious: Yes (Hospitalization)
  Sender: FDA-Public Use
  Company Number: IT-AUROBINDO-AUR-APL-2014-07179

PATIENT
  Age: 41 Year
  Sex: Female

DRUGS (2)
  1. CITALOPRAM [Suspect]
     Active Substance: CITALOPRAM HYDROBROMIDE
     Indication: Depression
     Dosage: UNK
     Route: 065
     Dates: start: 20130125
  2. PRAZEPAM [Suspect]
     Active Substance: PRAZEPAM
     Indication: Depression
     Dosage: UNK
     Route: 065
     Dates: start: 20130125, end: 20130125

REACTIONS (6)
  - Sopor [Recovered/Resolved]
  - Unresponsive to stimuli [Recovered/Resolved]
  - Mydriasis [Recovered/Resolved]
  - Hyporeflexia [Recovered/Resolved]
  - Drug abuse [Recovered/Resolved]
  - Toxicity to various agents [Recovered/Resolved]

NARRATIVE: CASE EVENT DATE: 20130125
